FAERS Safety Report 18437981 (Version 2)
Quarter: 2020Q4

REPORT INFORMATION
  Report Type: Spontaneous
  Country: BR (occurrence: BR)
  Receive Date: 20201028
  Receipt Date: 20201102
  Transmission Date: 20210114
  Serious: Yes (Disabling, Other)
  Sender: FDA-Public Use
  Company Number: BR-ALLERGAN-2039181US

PATIENT
  Sex: Male

DRUGS (2)
  1. LUMIGAN [Suspect]
     Active Substance: BIMATOPROST
     Indication: GLAUCOMA
     Dosage: 1 GTT, QPM
     Route: 047
  2. UNSPECIFIED EYE DROPS [Concomitant]
     Active Substance: UNSPECIFIED INGREDIENT
     Dosage: UNK, QAM
     Route: 047

REACTIONS (7)
  - Blindness unilateral [Not Recovered/Not Resolved]
  - Optic ischaemic neuropathy [Unknown]
  - Hypersensitivity [Recovered/Resolved]
  - Intraocular pressure increased [Unknown]
  - Eye irritation [Recovered/Resolved]
  - Product quality issue [Unknown]
  - Ocular hyperaemia [Recovered/Resolved]

NARRATIVE: CASE EVENT DATE: 2020
